FAERS Safety Report 17192192 (Version 1)
Quarter: 2019Q4

REPORT INFORMATION
  Report Type: Spontaneous
  Country: US (occurrence: US)
  Receive Date: 20191202
  Receipt Date: 20191202
  Transmission Date: 20200122
  Serious: No
  Sender: FDA-Public Use
  Company Number: None

PATIENT
  Sex: Male

DRUGS (1)
  1. CEFTRIAXONE SODIUM 10 GM APOTEX [Suspect]
     Active Substance: CEFTRIAXONE SODIUM
     Indication: OSTEOMYELITIS
     Dosage: ?          OTHER FREQUENCY:EVERY 24 HOURS;?
     Route: 042
     Dates: start: 20191109

REACTIONS (2)
  - Rash pruritic [None]
  - Therapy cessation [None]
